FAERS Safety Report 13404045 (Version 2)
Quarter: 2017Q2

REPORT INFORMATION
  Report Type: Spontaneous
  Country: JP (occurrence: JP)
  Receive Date: 20170405
  Receipt Date: 20170428
  Transmission Date: 20170830
  Serious: Yes (Other)
  Sender: FDA-Public Use
  Company Number: JP-ROCHE-1914497

PATIENT
  Age: 72 Year
  Sex: Male

DRUGS (4)
  1. LUCENTIS [Suspect]
     Active Substance: RANIBIZUMAB
     Indication: POLYPOIDAL CHOROIDAL VASCULOPATHY
     Dosage: UNK
     Route: 050
     Dates: start: 201201, end: 201304
  2. EYLEA [Concomitant]
     Active Substance: AFLIBERCEPT
     Indication: POLYPOIDAL CHOROIDAL VASCULOPATHY
     Dosage: UNK
     Route: 031
     Dates: start: 201304
  3. VISUDYNE [Suspect]
     Active Substance: VERTEPORFIN
     Dosage: UNK
     Route: 042
     Dates: start: 201601
  4. VISUDYNE [Suspect]
     Active Substance: VERTEPORFIN
     Indication: POLYPOIDAL CHOROIDAL VASCULOPATHY
     Dosage: UNK
     Route: 042
     Dates: start: 201507

REACTIONS (4)
  - Visual acuity reduced [Unknown]
  - Retinal detachment [Unknown]
  - Disease progression [Unknown]
  - Polypoidal choroidal vasculopathy [Recovered/Resolved]

NARRATIVE: CASE EVENT DATE: 201303
